FAERS Safety Report 12289180 (Version 1)
Quarter: 2016Q2

REPORT INFORMATION
  Report Type: Spontaneous
  Country: US (occurrence: None)
  Receive Date: 20160420
  Receipt Date: 20160420
  Transmission Date: 20160815
  Serious: Yes (Life-Threatening, Other)
  Sender: FDA-Public Use
  Company Number: None

PATIENT
  Age: 38 Year
  Sex: Male
  Weight: 72.58 kg

DRUGS (2)
  1. INSULIN [Concomitant]
     Active Substance: INSULIN NOS
  2. HUMIRA [Suspect]
     Active Substance: ADALIMUMAB
     Indication: CROHN^S DISEASE
     Dosage: GIVEN INTO/UNDER THE SKIN
     Route: 028
     Dates: start: 20151116

REACTIONS (12)
  - Abdominal distension [None]
  - Skin infection [None]
  - Fatigue [None]
  - Joint swelling [None]
  - Urticaria [None]
  - Lymphatic disorder [None]
  - Hepatic pain [None]
  - Weight increased [None]
  - Amnesia [None]
  - Hypersensitivity [None]
  - Influenza [None]
  - Impaired healing [None]

NARRATIVE: CASE EVENT DATE: 20151116
